FAERS Safety Report 10903973 (Version 5)
Quarter: 2015Q2

REPORT INFORMATION
  Report Type: Report from Study
  Country: DE (occurrence: DE)
  Receive Date: 20150311
  Receipt Date: 20150406
  Transmission Date: 20150821
  Serious: Yes (Other)
  Sender: FDA-Public Use
  Company Number: DE-SA-2015SA028288

PATIENT
  Age: 83 Year
  Sex: Female
  Weight: 73 kg

DRUGS (9)
  1. JANUVIA [Concomitant]
     Active Substance: SITAGLIPTIN PHOSPHATE
  2. LANTUS [Suspect]
     Active Substance: INSULIN GLARGINE
     Indication: TYPE 2 DIABETES MELLITUS
     Dosage: DOSE:18 UNIT(S)
     Route: 058
     Dates: start: 20140827
  3. TORASEMIDE [Concomitant]
     Active Substance: TORSEMIDE
  4. LANTUS [Suspect]
     Active Substance: INSULIN GLARGINE
     Indication: TYPE 2 DIABETES MELLITUS
     Dosage: DOSE:14 UNIT(S)
     Route: 058
     Dates: start: 20140523
  5. APONAL [Concomitant]
     Active Substance: DOXEPIN HYDROCHLORIDE
  6. LANTUS [Suspect]
     Active Substance: INSULIN GLARGINE
     Indication: TYPE 2 DIABETES MELLITUS
     Dosage: DOSE:8 UNIT(S)
     Route: 058
     Dates: start: 20140228
  7. ASPIRIN. [Concomitant]
     Active Substance: ASPIRIN
     Dosage: DOSE: 100 (UNIT UNKNOWN)
  8. RAMIPRIL. [Concomitant]
     Active Substance: RAMIPRIL
  9. METOPROLOL [Concomitant]
     Active Substance: METOPROLOL

REACTIONS (8)
  - Bundle branch block right [Recovered/Resolved]
  - Restlessness [Recovered/Resolved]
  - Hypoglycaemia [Recovered/Resolved]
  - Hunger [Recovered/Resolved]
  - Fall [Unknown]
  - Blood glucose increased [Unknown]
  - Neutropenia [Recovered/Resolved]
  - Dizziness [Recovered/Resolved]

NARRATIVE: CASE EVENT DATE: 20140507
